FAERS Safety Report 19264284 (Version 1)
Quarter: 2021Q2

REPORT INFORMATION
  Report Type: Spontaneous
  Country: US (occurrence: US)
  Receive Date: 20210516
  Receipt Date: 20210516
  Transmission Date: 20210717
  Serious: Yes (Disabling)
  Sender: FDA-Public Use
  Company Number: None

PATIENT
  Age: 41 Year
  Sex: Female
  Weight: 54 kg

DRUGS (5)
  1. OMEPRAZOLE. [Concomitant]
     Active Substance: OMEPRAZOLE
  2. XANAX [Concomitant]
     Active Substance: ALPRAZOLAM
  3. GNC PROBIOTIC [Concomitant]
  4. CIPROFLOXACIN. [Suspect]
     Active Substance: CIPROFLOXACIN
     Indication: URINARY TRACT INFECTION
     Dosage: ?          QUANTITY:1 TABLET(S);?
     Route: 048
     Dates: start: 20210417, end: 20210418
  5. GNC WOMAN^S MULTI?VITAMIN [Concomitant]

REACTIONS (6)
  - Tendonitis [None]
  - Paraesthesia [None]
  - Myalgia [None]
  - Toothache [None]
  - Hypoaesthesia [None]
  - Pain in extremity [None]

NARRATIVE: CASE EVENT DATE: 20210420
